FAERS Safety Report 20660989 (Version 1)
Quarter: 2022Q1

REPORT INFORMATION
  Report Type: Report from Study
  Country: US (occurrence: None)
  Receive Date: 20220331
  Receipt Date: 20220331
  Transmission Date: 20220423
  Serious: Yes (Other)
  Sender: FDA-Public Use
  Company Number: 2022A127121

PATIENT
  Sex: Female

DRUGS (1)
  1. CALQUENCE [Suspect]
     Active Substance: ACALABRUTINIB
     Indication: Chronic lymphocytic leukaemia
     Route: 048

REACTIONS (6)
  - Full blood count abnormal [Unknown]
  - Gait disturbance [Unknown]
  - White blood cell count abnormal [Unknown]
  - Weight abnormal [Unknown]
  - Asthenia [Unknown]
  - Contusion [Unknown]
